FAERS Safety Report 5393459-7 (Version None)
Quarter: 2007Q3

REPORT INFORMATION
  Report Type: 
  Country: None (occurrence: None)
  Receive Date: 20070723
  Receipt Date: 20060601
  Transmission Date: 20080115
  Serious: No
  Sender: FDA-Public Use
  Company Number: A0607975A

PATIENT
  Age: 63 Year
  Sex: Female
  Weight: 129.1 kg

DRUGS (1)
  1. AVANDIA [Suspect]
     Route: 048

REACTIONS (3)
  - BURNING SENSATION [None]
  - INFECTION [None]
  - RASH [None]
